FAERS Safety Report 5455318-0 (Version None)
Quarter: 2007Q3

REPORT INFORMATION
  Report Type: 
  Country: None (occurrence: None)
  Receive Date: 20070918
  Receipt Date: 20070912
  Transmission Date: 20080115
  Serious: Yes (Death)
  Sender: FDA-Public Use
  Company Number: JP-NOVOPROD-267349

PATIENT

DRUGS (2)
  1. NOVOSEVEN [Suspect]
     Indication: HAEMORRHAGE INTRACRANIAL
     Dosage: 4.8 MG, UNK
     Route: 042
  2. NOVOSEVEN [Suspect]
     Dosage: 6V/DAY
     Route: 042
     Dates: start: 20070903

REACTIONS (1)
  - HEPATIC FAILURE [None]
